FAERS Safety Report 5104459-6 (Version None)
Quarter: 2006Q3

REPORT INFORMATION
  Report Type: 
  Country: None (occurrence: None)
  Receive Date: 20060914
  Receipt Date: 20060905
  Transmission Date: 20061208
  Serious: Yes (Life-Threatening)
  Sender: FDA-Public Use
  Company Number: GB-BAYER-200611069BNE

PATIENT
  Age: 88 Year
  Sex: Female
  Weight: 75 kg

DRUGS (13)
  1. ASPIRIN [Suspect]
     Route: 048
  2. CITALOPRAM HYDROBROMIDE [Suspect]
     Route: 065
  3. HEPARIN [Suspect]
     Route: 058
  4. CALCICHEW [Concomitant]
     Route: 048
  5. FERROUS SULFATE TAB [Concomitant]
     Route: 065
  6. FUROSEMIDE [Concomitant]
     Route: 042
  7. ISOTARD XL [Concomitant]
     Route: 048
  8. METOLAZONE [Concomitant]
     Route: 048
  9. MOVICOL [Concomitant]
     Route: 048
  10. NEORECORMON [Concomitant]
     Route: 058
  11. PROCHLORPERAZINE TAB [Concomitant]
     Route: 048
  12. SPIRONOLACTONE [Concomitant]
     Route: 048
  13. ZOPICLONE [Concomitant]
     Route: 048

REACTIONS (2)
  - GASTROINTESTINAL HAEMORRHAGE [None]
  - OESOPHAGITIS [None]
